FAERS Safety Report 12127229 (Version 1)
Quarter: 2016Q1

REPORT INFORMATION
  Report Type: Spontaneous
  Country: US (occurrence: US)
  Receive Date: 20160229
  Receipt Date: 20160229
  Transmission Date: 20160526
  Serious: No
  Sender: FDA-Public Use
  Company Number: US-BAYER-2016-037122

PATIENT
  Age: 24 Year
  Sex: Male
  Weight: 66.21 kg

DRUGS (1)
  1. MIRALAX [Suspect]
     Active Substance: POLYETHYLENE GLYCOL 3350
     Dosage: 7 DF, ONCE
     Route: 048
     Dates: start: 20160221, end: 20160221

REACTIONS (2)
  - Diarrhoea [None]
  - Accidental overdose [None]

NARRATIVE: CASE EVENT DATE: 20160223
